FAERS Safety Report 23105023 (Version 1)
Quarter: 2023Q4

REPORT INFORMATION
  Report Type: Spontaneous
  Country: US (occurrence: None)
  Receive Date: 20231023
  Receipt Date: 20231023
  Transmission Date: 20240110
  Serious: Yes (Hospitalization)
  Sender: FDA-Public Use
  Company Number: None

PATIENT
  Age: 44 Year
  Sex: Female

DRUGS (1)
  1. CARBOPLATIN [Suspect]
     Active Substance: CARBOPLATIN
     Dosage: FREQUENCY : WEEKLY;?
     Route: 042
     Dates: start: 20230203, end: 20230217

REACTIONS (12)
  - Angina pectoris [None]
  - Dizziness [None]
  - Rash [None]
  - Abdominal pain upper [None]
  - Flushing [None]
  - Chest discomfort [None]
  - Pruritus [None]
  - Pruritus [None]
  - Therapy cessation [None]
  - Infusion related reaction [None]
  - Erythema [None]
  - Erythema [None]

NARRATIVE: CASE EVENT DATE: 20230217
